FAERS Safety Report 16479801 (Version 2)
Quarter: 2019Q3

REPORT INFORMATION
  Report Type: Spontaneous
  Country: AT (occurrence: AT)
  Receive Date: 20190626
  Receipt Date: 20190703
  Transmission Date: 20191004
  Serious: Yes (Other)
  Sender: FDA-Public Use
  Company Number: AT-MYLANLABS-2019M1057582

PATIENT
  Age: 67 Year
  Sex: Male

DRUGS (36)
  1. BUPRENORPHINE. [Suspect]
     Active Substance: BUPRENORPHINE
     Dosage: 140 MICROGRAM
     Route: 062
     Dates: start: 20150824, end: 20150828
  2. IMODIUM [Suspect]
     Active Substance: LOPERAMIDE HYDROCHLORIDE
     Indication: PRODUCT USED FOR UNKNOWN INDICATION
     Dosage: UNK
     Route: 065
  3. SOLUVIT                            /01591701/ [Suspect]
     Active Substance: VITAMINS
     Indication: PRODUCT USED FOR UNKNOWN INDICATION
     Dosage: UNK
     Route: 065
  4. LYRICA [Suspect]
     Active Substance: PREGABALIN
     Indication: PRODUCT USED FOR UNKNOWN INDICATION
     Dosage: 75 MILLIGRAM (75 MG, 0-0-1)
     Route: 065
  5. TEMESTA                            /00273201/ [Suspect]
     Active Substance: LORAZEPAM
     Indication: PRODUCT USED FOR UNKNOWN INDICATION
     Dosage: 2.5 MG, UNK
     Route: 065
     Dates: start: 201308, end: 201309
  6. PANTOPRAZOLE [Suspect]
     Active Substance: PANTOPRAZOLE
     Indication: PRODUCT USED FOR UNKNOWN INDICATION
     Dosage: 40 MILLIGRAM, QD (40 MG, 1-0-0)
     Route: 065
  7. DULOXETINE. [Suspect]
     Active Substance: DULOXETINE
     Indication: PRODUCT USED FOR UNKNOWN INDICATION
     Dosage: 60 MILLIGRAM, QD (60 MG, 2-0-0)
     Route: 065
     Dates: start: 201308, end: 201309
  8. EFFENTORA [Suspect]
     Active Substance: FENTANYL CITRATE
     Dosage: 400 MICROGRAM, UP TO 3 TIMES DAILY
     Route: 065
     Dates: start: 20150824, end: 20150828
  9. DRONABINOL. [Suspect]
     Active Substance: DRONABINOL
     Indication: PRODUCT USED FOR UNKNOWN INDICATION
     Dosage: 6 DROP, 3 TIMES
     Route: 065
     Dates: start: 201308, end: 201309
  10. HYDAL [Suspect]
     Active Substance: HYDROMORPHONE HYDROCHLORIDE
     Dosage: 5.2 MILLIGRAM, (5.2 MG, UP TO 3 TIMES DAILY)
     Route: 065
  11. SUBOXONE [Suspect]
     Active Substance: BUPRENORPHINE HYDROCHLORIDE\NALOXONE HYDROCHLORIDE
     Dosage: 8 MG / 2 MG
     Route: 060
  12. CATAPRESAN                         /00171101/ [Suspect]
     Active Substance: CLONIDINE
     Indication: PRODUCT USED FOR UNKNOWN INDICATION
     Dosage: 0.15 MILLIGRAM, PRN
     Route: 065
  13. EFFENTORA [Suspect]
     Active Substance: FENTANYL CITRATE
     Indication: PRODUCT USED FOR UNKNOWN INDICATION
     Dosage: 100 MICROGRAM, QID
     Route: 065
     Dates: start: 201308, end: 201309
  14. EFFENTORA [Suspect]
     Active Substance: FENTANYL CITRATE
     Dosage: 400 MICROGRAM, 2 TABLETS
     Route: 065
     Dates: start: 20150824, end: 20150828
  15. SUBOXONE [Suspect]
     Active Substance: BUPRENORPHINE HYDROCHLORIDE\NALOXONE HYDROCHLORIDE
     Indication: PRODUCT USED FOR UNKNOWN INDICATION
     Dosage: 2 MG / 0.5 MG UP TO 4 TIMES IN CASE OF PAIN ATTACK
     Route: 065
  16. HYDAL [Suspect]
     Active Substance: HYDROMORPHONE HYDROCHLORIDE
     Indication: PRODUCT USED FOR UNKNOWN INDICATION
     Dosage: 5.2 MILLIGRAM,(5.2 MG, UP TO 4 TIMES DAILY)
     Route: 065
     Dates: start: 201308, end: 201309
  17. HYDAL [Suspect]
     Active Substance: HYDROMORPHONE HYDROCHLORIDE
     Dosage: 5.2 MG, 2-3 TIMES DAILY
     Route: 065
     Dates: start: 201308, end: 201309
  18. MIRTAZAPIN [Suspect]
     Active Substance: MIRTAZAPINE
     Indication: PRODUCT USED FOR UNKNOWN INDICATION
     Dosage: UNK
     Route: 065
  19. LEXOTANIL [Suspect]
     Active Substance: BROMAZEPAM
     Indication: PRODUCT USED FOR UNKNOWN INDICATION
     Dosage: 3 MG, 1/2-0-0
     Route: 065
  20. EFFENTORA [Suspect]
     Active Substance: FENTANYL CITRATE
     Dosage: 400 MCG, 2-3 TIMES DAILY
     Route: 065
  21. QUETIAPINE. [Suspect]
     Active Substance: QUETIAPINE
     Indication: PRODUCT USED FOR UNKNOWN INDICATION
     Dosage: 25 MILLIGRAM, QD (25 MG, 0-0-1)
     Route: 065
  22. DIPIDOLOR [Suspect]
     Active Substance: PIRITRAMIDE
     Indication: PRODUCT USED FOR UNKNOWN INDICATION
     Dosage: 15 MG, UNK
     Route: 065
  23. SUBOXONE [Suspect]
     Active Substance: BUPRENORPHINE HYDROCHLORIDE\NALOXONE HYDROCHLORIDE
     Dosage: 2 MG/ 0.5 MG UP TO 6 TIMES DAILY
     Route: 065
     Dates: start: 201601, end: 201601
  24. DULOXETINE. [Suspect]
     Active Substance: DULOXETINE
     Dosage: 60 MILLIGRAM, BID (60 MG, 1-0-1)
     Route: 065
     Dates: start: 201308, end: 201309
  25. EFFENTORA [Suspect]
     Active Substance: FENTANYL CITRATE
     Dosage: 600 MICROGRAM
     Route: 065
     Dates: start: 20161014, end: 20161102
  26. BUPRENORPHINE. [Suspect]
     Active Substance: BUPRENORPHINE
     Indication: PRODUCT USED FOR UNKNOWN INDICATION
     Dosage: 70 MICROGRAM
     Route: 062
     Dates: start: 20130826, end: 20130919
  27. BUPRENORPHINE. [Suspect]
     Active Substance: BUPRENORPHINE
     Dosage: 105 MICROGRAM
     Route: 062
     Dates: start: 201308, end: 201309
  28. METOCLOPRAMIDE. [Suspect]
     Active Substance: METOCLOPRAMIDE
     Indication: PRODUCT USED FOR UNKNOWN INDICATION
     Dosage: UNK
     Route: 065
     Dates: start: 201308, end: 201309
  29. SEROQUEL [Suspect]
     Active Substance: QUETIAPINE FUMARATE
     Indication: PRODUCT USED FOR UNKNOWN INDICATION
     Dosage: 100 MILLIGRAM, QD (0-0-100 MG)
     Route: 065
     Dates: start: 20150824, end: 20150828
  30. ONDANSETRON [Suspect]
     Active Substance: ONDANSETRON
     Indication: PRODUCT USED FOR UNKNOWN INDICATION
     Dosage: UNK
     Route: 065
  31. PANTOPRAZOLE [Suspect]
     Active Substance: PANTOPRAZOLE
     Dosage: 40 MILLIGRAM, BID (40 MG, 1-0-1)
     Route: 065
  32. PANTOPRAZOLE [Suspect]
     Active Substance: PANTOPRAZOLE
     Dosage: 40 MG, 1-0-0
     Route: 065
     Dates: start: 201308, end: 201309
  33. TEMESTA                            /00273201/ [Suspect]
     Active Substance: LORAZEPAM
     Indication: PRODUCT USED FOR UNKNOWN INDICATION
     Dosage: 2.5 MG, UNK
     Route: 065
  34. BUPRENORPHINE. [Suspect]
     Active Substance: BUPRENORPHINE
     Dosage: 140 MICROGRAM
     Route: 062
     Dates: start: 20161014, end: 20161102
  35. SEROQUEL [Suspect]
     Active Substance: QUETIAPINE FUMARATE
     Dosage: 25 MILLIGRAM, QD (25 MG, 0-0-0-1)
     Route: 065
  36. SUBOXONE [Suspect]
     Active Substance: BUPRENORPHINE HYDROCHLORIDE\NALOXONE HYDROCHLORIDE
     Dosage: 16 MILLIGRAM, QD (12 MG - 0 - 4 MG)
     Route: 065
     Dates: start: 201601, end: 201601

REACTIONS (10)
  - Therapeutic response decreased [Unknown]
  - Tremor [Unknown]
  - Drug withdrawal syndrome [Recovered/Resolved]
  - Abdominal pain [Unknown]
  - Diarrhoea [Unknown]
  - Nausea [Unknown]
  - Vertigo [Unknown]
  - Decreased appetite [Unknown]
  - Depression [Unknown]
  - Drug dependence [Unknown]
